FAERS Safety Report 5077995-9 (Version None)
Quarter: 2006Q3

REPORT INFORMATION
  Report Type: 
  Country: None (occurrence: None)
  Receive Date: 20060811
  Receipt Date: 20060731
  Transmission Date: 20061208
  Serious: Yes (Other)
  Sender: FDA-Public Use
  Company Number: BR-JNJFOC-20060801002

PATIENT
  Age: 39 Year
  Sex: Male

DRUGS (1)
  1. HALDOL [Suspect]
     Indication: DRUG USE FOR UNKNOWN INDICATION
     Route: 048

REACTIONS (4)
  - INTENTIONAL OVERDOSE [None]
  - MUSCLE CONTRACTIONS INVOLUNTARY [None]
  - SOMNOLENCE [None]
  - SUICIDE ATTEMPT [None]
